FAERS Safety Report 21392445 (Version 2)
Quarter: 2022Q4

REPORT INFORMATION
  Report Type: Spontaneous
  Country: SE (occurrence: SE)
  Receive Date: 20220929
  Receipt Date: 20221007
  Transmission Date: 20230113
  Serious: Yes (Other)
  Sender: FDA-Public Use
  Company Number: SE-NOVARTISPH-NVSC2022SE220499

PATIENT
  Age: 23 Year
  Sex: Female

DRUGS (1)
  1. ANAFRANIL [Suspect]
     Active Substance: CLOMIPRAMINE HYDROCHLORIDE
     Indication: Irritable bowel syndrome
     Dosage: UNK
     Route: 065

REACTIONS (5)
  - Syncope [Unknown]
  - Malaise [Unknown]
  - Dizziness [Unknown]
  - Headache [Unknown]
  - Off label use [Unknown]

NARRATIVE: CASE EVENT DATE: 20220511
